FAERS Safety Report 24279122 (Version 1)
Quarter: 2024Q3

REPORT INFORMATION
  Report Type: Spontaneous
  Country: US (occurrence: US)
  Receive Date: 20240903
  Receipt Date: 20240903
  Transmission Date: 20241017
  Serious: No
  Sender: PURDUE
  Company Number: US-PURDUE PHARMA-USA-2024-0311728

PATIENT
  Age: 66 Year
  Sex: Female

DRUGS (1)
  1. BUTRANS [Suspect]
     Active Substance: BUPRENORPHINE
     Indication: Pain
     Dosage: 20 MCG
     Route: 062
     Dates: start: 20240902

REACTIONS (2)
  - Wrong technique in product usage process [Unknown]
  - Product adhesion issue [Unknown]

NARRATIVE: CASE EVENT DATE: 20240902
